FAERS Safety Report 7999054-5 (Version None)
Quarter: 2011Q4

REPORT INFORMATION
  Report Type: 
  Country: None (occurrence: None)
  Receive Date: 20111221
  Receipt Date: 20111214
  Transmission Date: 20120403
  Serious: Yes (Hospitalization, Other)
  Sender: FDA-Public Use
  Company Number: PHHO2011US12272

PATIENT
  Sex: Male
  Weight: 102 kg

DRUGS (12)
  1. CERTICAN [Suspect]
     Dosage: 0.75 MG, BID
     Route: 048
     Dates: start: 20110725, end: 20110829
  2. PREDNISONE TAB [Suspect]
     Indication: RENAL TRANSPLANT
     Dosage: 15 MG, DAILY
     Route: 048
     Dates: start: 20110701, end: 20110713
  3. VALCYTE [Suspect]
     Dosage: 450 MG, QD
     Dates: start: 20110627
  4. CERTICAN [Suspect]
     Indication: RENAL TRANSPLANT
     Dosage: 1.5 MG, BID
     Route: 048
     Dates: start: 20110627, end: 20110712
  5. IRON DEXTRAN [Concomitant]
     Dosage: 25 MG
     Route: 042
     Dates: start: 20110628
  6. PREDNISONE TAB [Suspect]
     Dosage: 5 MG, DAILY
     Route: 048
     Dates: start: 20110714
  7. PROGRAF [Suspect]
     Indication: RENAL TRANSPLANT
     Dosage: 2 MG, BID
     Route: 048
     Dates: start: 20110628
  8. AUGMENTIN [Suspect]
     Indication: URINARY TRACT INFECTION
     Dosage: 1000 MG, BID
     Route: 065
     Dates: start: 20110828, end: 20110901
  9. NEXIUM [Suspect]
     Dosage: UNK
  10. IRON DEXTRAN [Concomitant]
     Dosage: 1025 MG, UNK
     Route: 042
     Dates: start: 20110827
  11. IMURAN [Suspect]
     Indication: IMMUNOSUPPRESSION
     Dosage: 150 MG, QD
     Dates: start: 20110830, end: 20110901
  12. IRON DEXTRAN [Concomitant]
     Dosage: 1000 MG, UNK
     Route: 042
     Dates: start: 20110629

REACTIONS (5)
  - ANAEMIA POSTOPERATIVE [None]
  - ESCHERICHIA URINARY TRACT INFECTION [None]
  - CONCOMITANT DISEASE PROGRESSION [None]
  - DIARRHOEA [None]
  - GASTRIC ANTRAL VASCULAR ECTASIA [None]
